FAERS Safety Report 4586801-8 (Version None)
Quarter: 2005Q1

REPORT INFORMATION
  Report Type: 
  Country: None (occurrence: None)
  Receive Date: 20050218
  Receipt Date: 20040917
  Transmission Date: 20050727
  Serious: Yes (Hospitalization)
  Sender: FDA-Public Use
  Company Number: 200413477FR

PATIENT
  Age: 60 Year
  Sex: Male

DRUGS (3)
  1. CALSYN [Suspect]
     Indication: COMPLEX REGIONAL PAIN SYNDROME
     Route: 058
     Dates: start: 20040913, end: 20040917
  2. ALLOPURINOL [Concomitant]
     Indication: HYPERURICAEMIA
     Route: 048
  3. LIPANTHYL [Concomitant]
     Route: 048

REACTIONS (6)
  - ARTHRALGIA [None]
  - BACK PAIN [None]
  - DIZZINESS [None]
  - DYSAESTHESIA [None]
  - INTERVERTEBRAL DISC PROTRUSION [None]
  - TREMOR [None]
